FAERS Safety Report 6347623-0 (Version None)
Quarter: 2009Q3

REPORT INFORMATION
  Report Type: 
  Country: None (occurrence: None)
  Receive Date: 20090910
  Receipt Date: 20090827
  Transmission Date: 20100115
  Serious: Yes (Other)
  Sender: FDA-Public Use
  Company Number: US-ROCHE-653164

PATIENT
  Sex: Female

DRUGS (2)
  1. PEGASYS [Suspect]
     Indication: HEPATITIS C
     Dosage: FORM: PFS
     Route: 065
     Dates: start: 20090607
  2. RIBAVIRIN [Suspect]
     Indication: HEPATITIS C
     Route: 065
     Dates: start: 20090607

REACTIONS (3)
  - BLOOD POTASSIUM INCREASED [None]
  - DIARRHOEA [None]
  - WHITE BLOOD CELL COUNT DECREASED [None]
